FAERS Safety Report 5789382-6 (Version None)
Quarter: 2008Q2

REPORT INFORMATION
  Report Type: 
  Country: None (occurrence: None)
  Receive Date: 20080625
  Receipt Date: 20080625
  Transmission Date: 20081010
  Serious: No
  Sender: FDA-Public Use
  Company Number: None

PATIENT
  Age: 13 Year
  Sex: Male

DRUGS (3)
  1. KEPPRA [Suspect]
     Indication: CONVULSION
     Dosage: ORAL;1000.0 MILLIGRAM
     Route: 048
     Dates: start: 20080419, end: 20080420
  2. CETIRIZINE HCL [Concomitant]
  3. MONTELUKAST SODIUM [Concomitant]

REACTIONS (2)
  - ASTHENIA [None]
  - HYPOTONIA [None]
